FAERS Safety Report 26187581 (Version 1)
Quarter: 2025Q4

REPORT INFORMATION
  Report Type: Spontaneous
  Country: EU (occurrence: EU)
  Receive Date: 20251222
  Receipt Date: 20251222
  Transmission Date: 20260118
  Serious: Yes (Death)
  Sender: NOVARTIS
  Company Number: EU-002147023-NVSC2025PL194423

PATIENT
  Age: 80 Year
  Sex: Female

DRUGS (1)
  1. SCEMBLIX [Suspect]
     Active Substance: ASCIMINIB HYDROCHLORIDE
     Indication: Chronic myeloid leukaemia
     Dosage: 40 MG, BID
     Route: 065
     Dates: start: 20240716

REACTIONS (5)
  - Pulmonary mass [Fatal]
  - Dehydration [Fatal]
  - Renal failure [Fatal]
  - Infection [Fatal]
  - Leukocytosis [Fatal]
